FAERS Safety Report 6387290-3 (Version None)
Quarter: 2009Q4

REPORT INFORMATION
  Report Type: 
  Country: None (occurrence: None)
  Receive Date: 20091002
  Receipt Date: 20090921
  Transmission Date: 20100525
  Serious: Yes (Other)
  Sender: FDA-Public Use
  Company Number: US-JNJCH-2009025629

PATIENT
  Age: 6 Year

DRUGS (1)
  1. PURELL ORIGINAL [Suspect]
     Indication: ACCIDENTAL EXPOSURE
     Dosage: TEXT:UNSPECIFIED ONCE
     Route: 048
     Dates: start: 20090901, end: 20090901

REACTIONS (3)
  - ACCIDENTAL EXPOSURE [None]
  - BLOOD ALCOHOL INCREASED [None]
  - DIZZINESS [None]
